FAERS Safety Report 16291351 (Version 2)
Quarter: 2019Q2

REPORT INFORMATION
  Report Type: Spontaneous
  Country: IT (occurrence: IT)
  Receive Date: 20190509
  Receipt Date: 20190530
  Transmission Date: 20190711
  Serious: Yes (Hospitalization)
  Sender: FDA-Public Use
  Company Number: IT-PFIZER INC-2019194009

PATIENT
  Age: 68 Year
  Sex: Male
  Weight: 70 kg

DRUGS (2)
  1. FLUCONAZOLE. [Suspect]
     Active Substance: FLUCONAZOLE
     Indication: CANDIDA SEPSIS
     Dosage: 600 MG, SINGLE (TOTAL)
     Route: 042
     Dates: start: 20190412
  2. TARDYFER [Interacting]
     Active Substance: FERROUS SULFATE
     Indication: SUPPORTIVE CARE
     Dosage: 1 DF, SINGLE (TOTAL)
     Route: 048
     Dates: start: 20190411, end: 20190413

REACTIONS (3)
  - Drug interaction [Recovering/Resolving]
  - Pruritus [Recovering/Resolving]
  - Erythema [Recovering/Resolving]

NARRATIVE: CASE EVENT DATE: 20190412
